FAERS Safety Report 5975914-1 (Version None)
Quarter: 2008Q4

REPORT INFORMATION
  Report Type: 
  Country: None (occurrence: None)
  Receive Date: 20081202
  Receipt Date: 20080211
  Transmission Date: 20090506
  Serious: No
  Sender: FDA-Public Use
  Company Number: US-AMGEN-KDL264912

PATIENT
  Sex: Female

DRUGS (1)
  1. ENBREL [Suspect]
     Indication: ANKYLOSING SPONDYLITIS
     Route: 058
     Dates: start: 20080209

REACTIONS (4)
  - ABDOMINAL DISTENSION [None]
  - COUGH [None]
  - HYPERHIDROSIS [None]
  - OROPHARYNGEAL PAIN [None]
